FAERS Safety Report 22041866 (Version 1)
Quarter: 2023Q1

REPORT INFORMATION
  Report Type: Spontaneous
  Country: US (occurrence: US)
  Receive Date: 20230227
  Receipt Date: 20230227
  Transmission Date: 20230418
  Serious: No
  Sender: FDA-Public Use
  Company Number: US-MYLANLABS-2023M1002021

PATIENT
  Sex: Female
  Weight: 91.17 kg

DRUGS (4)
  1. PHENYTOIN [Suspect]
     Active Substance: PHENYTOIN
     Indication: Seizure
     Dosage: 200 MILLIGRAM, BID (2 CAPSULES BID)
     Route: 065
  2. HYDROCHLOROTHIAZIDE\LOSARTAN [Concomitant]
     Active Substance: HYDROCHLOROTHIAZIDE\LOSARTAN
     Dosage: UNK, 50/12.5
     Route: 065
     Dates: start: 20170222
  3. ENBREL [Concomitant]
     Active Substance: ETANERCEPT
     Dosage: 50 MILLIGRAM
     Route: 065
     Dates: start: 20171120
  4. METHOTREXATE [Concomitant]
     Active Substance: METHOTREXATE
     Dosage: 50 MILLIGRAM
     Route: 065
     Dates: start: 20130909

REACTIONS (3)
  - Illness [Unknown]
  - Urticaria [Recovered/Resolved]
  - Product substitution issue [Unknown]
